FAERS Safety Report 11143825 (Version 1)
Quarter: 2015Q2

REPORT INFORMATION
  Report Type: Other
  Country: CA (occurrence: CA)
  Receive Date: 20150528
  Receipt Date: 20150528
  Transmission Date: 20150821
  Serious: Yes (Other)
  Sender: FDA-Public Use
  Company Number: CA-TARO PHARMACEUTICALS U.S.A., INC-2015SUN01279

PATIENT
  Age: 49 Year
  Sex: Male
  Weight: 158.73 kg

DRUGS (3)
  1. TARO-WARFARIN [Suspect]
     Active Substance: WARFARIN
     Indication: PRODUCT USED FOR UNKNOWN INDICATION
     Dosage: 2.5 MG, QD
  2. PERIDEX ORAL RINSE [Concomitant]
     Route: 048
  3. TARO-WARFARIN [Suspect]
     Active Substance: WARFARIN
     Dosage: 5.0 MG, QD

REACTIONS (4)
  - Thrombosis [Recovered/Resolved]
  - Contusion [Recovered/Resolved]
  - Condition aggravated [Recovered/Resolved]
  - International normalised ratio increased [Recovered/Resolved]
